FAERS Safety Report 7622101-7 (Version None)
Quarter: 2011Q3

REPORT INFORMATION
  Report Type: 
  Country: None (occurrence: None)
  Receive Date: 20110720
  Receipt Date: 20110304
  Transmission Date: 20111222
  Serious: Yes (Hospitalization, Other)
  Sender: FDA-Public Use
  Company Number: US-BAYER-201038115NA

PATIENT
  Age: 27 Year
  Sex: Female
  Weight: 79 kg

DRUGS (10)
  1. YASMIN [Suspect]
     Indication: ACNE
     Dosage: UNK
     Dates: start: 20030101, end: 20080101
  2. YASMIN [Suspect]
     Indication: CONTRACEPTION
  3. NAPROXEN (ALEVE) [Concomitant]
  4. ASPIRIN [Concomitant]
     Indication: HEADACHE
  5. CELEXA [Concomitant]
     Indication: DEPRESSION
  6. XANAX [Concomitant]
     Indication: ANXIETY
  7. EFFEXOR [Concomitant]
  8. DROSPIRENONE AND ETHINYL ESTRADIOL [Suspect]
  9. MOTRIN [Concomitant]
  10. LEXAPRO [Concomitant]

REACTIONS (7)
  - ABDOMINAL PAIN [None]
  - MICTURITION URGENCY [None]
  - PELVIC PAIN [None]
  - NEPHROLITHIASIS [None]
  - DYSURIA [None]
  - INJURY [None]
  - BACK PAIN [None]
